FAERS Safety Report 8002502-8 (Version None)
Quarter: 2011Q4

REPORT INFORMATION
  Report Type: 
  Country: None (occurrence: None)
  Receive Date: 20111222
  Receipt Date: 20110121
  Transmission Date: 20120403
  Serious: No
  Sender: FDA-Public Use
  Company Number: US-BRISTOL-MYERS SQUIBB COMPANY-15517121

PATIENT

DRUGS (1)
  1. QUESTRAN [Suspect]
     Route: 065

REACTIONS (1)
  - CONSTIPATION [None]
